FAERS Safety Report 16108409 (Version 1)
Quarter: 2019Q1

REPORT INFORMATION
  Report Type: Report from Study
  Country: None (occurrence: US)
  Receive Date: 20190323
  Receipt Date: 20190323
  Transmission Date: 20190418
  Serious: Yes (Other)
  Sender: FDA-Public Use
  Company Number: US-ABBVIE-19K-163-2708713-00

PATIENT
  Age: 56 Year
  Sex: Male

DRUGS (3)
  1. HUMIRA [Suspect]
     Active Substance: ADALIMUMAB
     Indication: PSORIATIC ARTHROPATHY
     Route: 058
  2. HUMIRA [Suspect]
     Active Substance: ADALIMUMAB
     Indication: PSORIATIC ARTHROPATHY
     Route: 058
  3. REMICADE [Suspect]
     Active Substance: INFLIXIMAB
     Indication: PRODUCT USED FOR UNKNOWN INDICATION
     Route: 065

REACTIONS (14)
  - General physical condition abnormal [Unknown]
  - Wrong product administered [Recovering/Resolving]
  - Scoliosis [Unknown]
  - Injection site papule [Recovered/Resolved]
  - Injection site pain [Recovered/Resolved]
  - Intervertebral disc protrusion [Unknown]
  - Asthenia [Unknown]
  - Injection site swelling [Unknown]
  - Incorrect dose administered [Recovered/Resolved]
  - Injection site bruising [Recovered/Resolved]
  - Nervousness [Recovering/Resolving]
  - Tremor [Recovering/Resolving]
  - Osteoporosis [Not Recovered/Not Resolved]
  - Fatigue [Recovering/Resolving]

NARRATIVE: CASE EVENT DATE: 20190317
